FAERS Safety Report 19426610 (Version 1)
Quarter: 2021Q2

REPORT INFORMATION
  Report Type: Spontaneous
  Country: US (occurrence: US)
  Receive Date: 20210617
  Receipt Date: 20210617
  Transmission Date: 20210717
  Serious: Yes (Hospitalization)
  Sender: FDA-Public Use
  Company Number: US-ABBVIE-21K-163-3946815-00

PATIENT

DRUGS (1)
  1. RINVOQ [Suspect]
     Active Substance: UPADACITINIB
     Indication: COLITIS ULCERATIVE
     Route: 048

REACTIONS (4)
  - C-reactive protein abnormal [Unknown]
  - Proctitis [Unknown]
  - Colitis [Unknown]
  - Drug ineffective for unapproved indication [Unknown]
